FAERS Safety Report 7543807-4 (Version None)
Quarter: 2011Q2

REPORT INFORMATION
  Report Type: 
  Country: None (occurrence: None)
  Receive Date: 20110613
  Receipt Date: 20110531
  Transmission Date: 20111010
  Serious: Yes (Hospitalization, Other)
  Sender: FDA-Public Use
  Company Number: GB-UCBSA-032670

PATIENT
  Sex: Male

DRUGS (5)
  1. LANSOPRAZOLE [Concomitant]
     Route: 048
  2. CITALOPRAM HYDROBROMIDE [Concomitant]
     Route: 048
  3. CIMZIA [Suspect]
     Indication: RHEUMATOID ARTHRITIS
     Route: 058
     Dates: start: 20110511, end: 20110511
  4. ACETAMINOPHEN AND CODEINE PHOSPHATE [Concomitant]
     Dosage: 30/500, 2 PRN
     Route: 048
  5. VESICARE [Concomitant]
     Route: 048

REACTIONS (1)
  - ANAPHYLACTIC REACTION [None]
